FAERS Safety Report 22169085 (Version 5)
Quarter: 2023Q4

REPORT INFORMATION
  Report Type: Spontaneous
  Country: US (occurrence: US)
  Receive Date: 20230404
  Receipt Date: 20231228
  Transmission Date: 20240110
  Serious: No
  Sender: FDA-Public Use
  Company Number: US-SA-SAC20230403000296

PATIENT
  Age: 77 Year
  Sex: Female

DRUGS (1)
  1. DUPIXENT [Suspect]
     Active Substance: DUPILUMAB
     Indication: Neurodermatitis
     Dosage: 300 MG QOW
     Route: 058
     Dates: start: 202212

REACTIONS (9)
  - Blood glucose increased [Unknown]
  - Vision blurred [Unknown]
  - Neck pain [Unknown]
  - Condition aggravated [Unknown]
  - Pain in extremity [Unknown]
  - Condition aggravated [Unknown]
  - Nasopharyngitis [Recovering/Resolving]
  - Myalgia [Unknown]
  - Arthralgia [Recovering/Resolving]
